FAERS Safety Report 10431678 (Version 1)
Quarter: 2014Q3

REPORT INFORMATION
  Report Type: Spontaneous
  Country: TR (occurrence: None)
  Receive Date: 20140903
  Receipt Date: 20140903
  Transmission Date: 20150326
  Serious: Yes (Hospitalization)
  Sender: FDA-Public Use
  Company Number: IMP_07883_2014

PATIENT
  Age: 57 Year
  Sex: Male

DRUGS (2)
  1. ALCOHOL (ALCOHOL) [Suspect]
     Active Substance: ALCOHOL
     Dosage: 150 CC
  2. ALPRAZOLAM (ALPRAZOLAM) [Suspect]
     Active Substance: ALPRAZOLAM
     Indication: PRODUCT USED FOR UNKNOWN INDICATION
     Dosage: NOT THE PRESCRIBED DOSE, DF

REACTIONS (7)
  - Alcohol use [None]
  - Pupillary light reflex tests abnormal [None]
  - Loss of consciousness [None]
  - Miosis [None]
  - Poisoning [None]
  - Extensor plantar response [None]
  - Depressed mood [None]
